FAERS Safety Report 17993002 (Version 2)
Quarter: 2020Q3

REPORT INFORMATION
  Report Type: Spontaneous
  Country: US (occurrence: US)
  Receive Date: 20200707
  Receipt Date: 20200806
  Transmission Date: 20201103
  Serious: Yes (Hospitalization)
  Sender: FDA-Public Use
  Company Number: US-ROCHE-2637315

PATIENT
  Age: 31 Year
  Sex: Female

DRUGS (1)
  1. PULMOZYME [Suspect]
     Active Substance: DORNASE ALFA
     Indication: PRODUCT USED FOR UNKNOWN INDICATION
     Dosage: 1MG/ML
     Route: 055

REACTIONS (4)
  - COVID-19 [Unknown]
  - Hepatic function abnormal [Unknown]
  - Renal impairment [Unknown]
  - Thrombosis [Unknown]

NARRATIVE: CASE EVENT DATE: 20200701
